FAERS Safety Report 13656765 (Version 1)
Quarter: 2017Q2

REPORT INFORMATION
  Report Type: Spontaneous
  Country: AU (occurrence: AU)
  Receive Date: 20170615
  Receipt Date: 20170615
  Transmission Date: 20170830
  Serious: No
  Sender: FDA-Public Use
  Company Number: AU-ALLERGAN-1669153US

PATIENT
  Sex: Female

DRUGS (1)
  1. OXYTROL [Suspect]
     Active Substance: OXYBUTYNIN
     Indication: INCONTINENCE
     Dosage: UNK, Q2WEEKS
     Route: 062
     Dates: start: 20160906

REACTIONS (3)
  - Drug dose omission [Unknown]
  - Pruritus [Recovering/Resolving]
  - Urticaria [Recovering/Resolving]
